FAERS Safety Report 12118391 (Version 1)
Quarter: 2016Q1

REPORT INFORMATION
  Report Type: Spontaneous
  Country: US (occurrence: None)
  Receive Date: 20160224
  Receipt Date: 20160224
  Transmission Date: 20160526
  Serious: Yes (Other)
  Sender: FDA-Public Use
  Company Number: None

PATIENT
  Age: 58 Year
  Sex: Female
  Weight: 56.7 kg

DRUGS (12)
  1. S.BIYARD [Concomitant]
  2. CORTISOL MANAGER [Concomitant]
  3. BIOTIC PROBIOTIC POWDER [Concomitant]
  4. RESTASIS [Concomitant]
     Active Substance: CYCLOSPORINE
  5. THORNE NEUROCHONDRIA [Concomitant]
  6. SACCHAROMYCIN [Concomitant]
  7. POWDER [Concomitant]
  8. BIOTIC [Concomitant]
  9. VITAMIN B COMPLEX [Concomitant]
     Active Substance: CYANOCOBALAMIN\DEXPANTHENOL\NIACINAMIDE\PYRIDOXINE HYDROCHLORIDE\RIBOFLAVIN 5^-PHOSPHATE SODIUM\THIAMINE HYDROCHLORIDE\VITAMIN B COMPLEX
  10. FLAXSEED [Concomitant]
     Active Substance: FLAX SEED
  11. CIPROFLOXACIN. [Suspect]
     Active Substance: CIPROFLOXACIN
     Indication: DIVERTICULITIS
     Route: 048
     Dates: start: 20150911, end: 20151026
  12. OASIS TEARS [Concomitant]
     Active Substance: GLYCERIN

REACTIONS (14)
  - Neuralgia [None]
  - Fatigue [None]
  - Peripheral coldness [None]
  - Visual impairment [None]
  - Influenza like illness [None]
  - Feeling abnormal [None]
  - Pollakiuria [None]
  - Asthenia [None]
  - Pain [None]
  - Muscle spasms [None]
  - Insomnia [None]
  - Nervous system disorder [None]
  - Abdominal distension [None]
  - Disturbance in attention [None]

NARRATIVE: CASE EVENT DATE: 20150915
